FAERS Safety Report 7259516-5 (Version None)
Quarter: 2011Q1

REPORT INFORMATION
  Report Type: 
  Country: None (occurrence: None)
  Receive Date: 20110129
  Receipt Date: 20100608
  Transmission Date: 20110831
  Serious: No
  Sender: FDA-Public Use
  Company Number: US-PFIZER INC-2010071734

PATIENT

DRUGS (6)
  1. RELPAX [Interacting]
     Dosage: UNK
  2. TOPAMAX [Suspect]
     Dosage: UNK
  3. WELLBUTRIN [Suspect]
     Dosage: UNK
  4. TENIDAP SODIUM [Suspect]
     Dosage: UNK
  5. LEVOXYL [Suspect]
     Dosage: UNK
  6. RANITIDINE HCL [Suspect]

REACTIONS (3)
  - DRUG INTERACTION [None]
  - DRY SKIN [None]
  - PAIN IN EXTREMITY [None]
